FAERS Safety Report 5487550-4 (Version None)
Quarter: 2007Q4

REPORT INFORMATION
  Report Type: 
  Country: None (occurrence: None)
  Receive Date: 20071016
  Receipt Date: 20071004
  Transmission Date: 20080405
  Serious: Yes (Other)
  Sender: FDA-Public Use
  Company Number: US-PFIZER INC-2007084895

PATIENT
  Sex: Female
  Weight: 58.181 kg

DRUGS (8)
  1. CHANTIX [Suspect]
     Indication: EX-SMOKER
  2. UNIPHYL [Interacting]
     Indication: ASTHMA
  3. COZAAR [Concomitant]
  4. MEDROL [Concomitant]
  5. LEXAPRO [Concomitant]
  6. SPIRIVA [Concomitant]
  7. PULMICORT [Concomitant]
  8. PROVENTIL GENTLEHALER [Concomitant]

REACTIONS (4)
  - BLOOD PRESSURE INCREASED [None]
  - DRUG INTERACTION [None]
  - FEELING ABNORMAL [None]
  - OEDEMA PERIPHERAL [None]
